FAERS Safety Report 8224269-0 (Version None)
Quarter: 2012Q1

REPORT INFORMATION
  Report Type: 
  Country: None (occurrence: None)
  Receive Date: 20120321
  Receipt Date: 20120314
  Transmission Date: 20120608
  Serious: Yes (Hospitalization)
  Sender: FDA-Public Use
  Company Number: US-ASTELLAS-2012US002873

PATIENT
  Sex: Female

DRUGS (1)
  1. TARCEVA [Suspect]
     Indication: PRODUCT USED FOR UNKNOWN INDICATION
     Dosage: UNK
     Route: 048

REACTIONS (6)
  - WEIGHT DECREASED [None]
  - DEHYDRATION [None]
  - UNEVALUABLE EVENT [None]
  - NAUSEA [None]
  - VOMITING [None]
  - LABORATORY TEST ABNORMAL [None]
